APPROVED DRUG PRODUCT: ONDANSETRON HYDROCHLORIDE
Active Ingredient: ONDANSETRON HYDROCHLORIDE
Strength: EQ 4MG BASE
Dosage Form/Route: TABLET;ORAL
Application: A076183 | Product #003 | TE Code: AB
Applicant: DR REDDYS LABORATORIES LTD
Approved: Dec 26, 2006 | RLD: No | RS: No | Type: RX